FAERS Safety Report 11727618 (Version 2)
Quarter: 2019Q1

REPORT INFORMATION
  Report Type: Spontaneous
  Country: US (occurrence: US)
  Receive Date: 20151112
  Receipt Date: 20190219
  Transmission Date: 20190417
  Serious: Yes (Other)
  Sender: FDA-Public Use
  Company Number: US-SA-2015SA178396

PATIENT
  Age: 75 Year
  Sex: Male

DRUGS (5)
  1. SEVELAMER SALT NOT SPECIFIED [Suspect]
     Active Substance: SEVELAMER
     Indication: END STAGE RENAL DISEASE
     Dosage: 1600 MG,TID
     Route: 065
  2. METOPROLOL. [Concomitant]
     Active Substance: METOPROLOL
     Dosage: 12.5 MG,BID
  3. NEPHRO-VITE RX [Concomitant]
     Dosage: UNK
  4. ACETYLSALICYLIC ACID [Suspect]
     Active Substance: ASPIRIN
     Dosage: 325 MG,UNK
     Route: 065
  5. ATORVASTATIN [Concomitant]
     Active Substance: ATORVASTATIN
     Dosage: 20 MG,UNK

REACTIONS (3)
  - Crystal deposit intestine [Unknown]
  - Rectal haemorrhage [Unknown]
  - Gastrointestinal ulcer [Unknown]
